FAERS Safety Report 9868056 (Version 2)
Quarter: 2014Q2

REPORT INFORMATION
  Report Type: Report from Study
  Country: JP (occurrence: JP)
  Receive Date: 20140204
  Receipt Date: 20140526
  Transmission Date: 20141212
  Serious: Yes (Death)
  Sender: FDA-Public Use
  Company Number: JP-009507513-1402JPN000205

PATIENT
  Age: 61 Year
  Sex: Female
  Weight: 81 kg

DRUGS (11)
  1. PEGINTRON [Suspect]
     Indication: HEPATIC CIRRHOSIS
     Dosage: 100 MICROGRAM, QW
     Route: 058
     Dates: start: 20120731, end: 20120731
  2. PEGINTRON [Suspect]
     Dosage: 50 MICROGRAM, QW
     Route: 058
     Dates: start: 20120807, end: 20120807
  3. PEGINTRON [Suspect]
     Dosage: 60 MICROGRAM, QW
     Route: 058
     Dates: start: 20120813, end: 20120820
  4. REBETOL [Suspect]
     Indication: HEPATIC CIRRHOSIS
     Dosage: 800 MG, QD
     Route: 048
     Dates: start: 20120731, end: 20120826
  5. LOXONIN [Concomitant]
     Indication: PYREXIA
     Dosage: 60 MG, PRN
     Route: 048
     Dates: start: 20120731, end: 20120831
  6. MUCOSTA [Concomitant]
     Indication: PROPHYLAXIS
     Dosage: 100 MG, PRN
     Route: 048
     Dates: start: 20120731, end: 20120831
  7. ASPARA CA [Concomitant]
     Indication: OSTEOPOROSIS
     Dosage: 200 MG, TID
     Route: 048
     Dates: start: 20100831, end: 20120809
  8. FEMARA [Concomitant]
     Indication: PROPHYLAXIS
     Dosage: 2.5 MG, QD
     Route: 048
     Dates: start: 20101101, end: 20120831
  9. ZANTAC [Concomitant]
     Indication: ABDOMINAL DISCOMFORT
     Dosage: 75 MG, BID
     Route: 048
     Dates: start: 20120820, end: 20120831
  10. PL-GRANULES [Concomitant]
     Indication: NASOPHARYNGITIS
     Dosage: 1 G, TID
     Route: 048
     Dates: start: 20120827, end: 20120830
  11. LACTEC [Concomitant]
     Indication: DEHYDRATION
     Dosage: 500 ML, QD
     Route: 042
     Dates: start: 20120827, end: 20120827

REACTIONS (9)
  - Death [Fatal]
  - Platelet count decreased [Not Recovered/Not Resolved]
  - White blood cell count decreased [Recovering/Resolving]
  - Abdominal discomfort [Not Recovered/Not Resolved]
  - Pyrexia [Not Recovered/Not Resolved]
  - Nasopharyngitis [Not Recovered/Not Resolved]
  - Cough [Not Recovered/Not Resolved]
  - Dehydration [Not Recovered/Not Resolved]
  - Blood lactate dehydrogenase increased [Not Recovered/Not Resolved]
